FAERS Safety Report 4672489-4 (Version None)
Quarter: 2005Q2

REPORT INFORMATION
  Report Type: 
  Country: None (occurrence: None)
  Receive Date: 20050524
  Receipt Date: 20050512
  Transmission Date: 20051028
  Serious: Yes (Hospitalization)
  Sender: FDA-Public Use
  Company Number: 200511602FR

PATIENT
  Age: 84 Year
  Sex: Female

DRUGS (9)
  1. LASILIX [Suspect]
     Route: 048
     Dates: start: 20050415, end: 20050425
  2. ALDACTONE [Suspect]
     Route: 048
     Dates: start: 20050421, end: 20050425
  3. TAREG [Concomitant]
     Route: 048
     Dates: start: 20050421, end: 20050426
  4. TANAKAN [Concomitant]
     Route: 048
  5. ENDOTELON [Concomitant]
     Route: 048
  6. PLAVIX [Concomitant]
     Route: 048
     Dates: start: 20050406
  7. KARDEGIC [Concomitant]
     Route: 048
  8. ELISOR [Concomitant]
     Route: 048
  9. CARDENSIEL [Concomitant]
     Route: 048
     Dates: start: 20050406

REACTIONS (4)
  - MYOCARDIAL INFARCTION [None]
  - PRURIGO [None]
  - PSYCHOMOTOR SKILLS IMPAIRED [None]
  - RENAL FAILURE ACUTE [None]
